FAERS Safety Report 7956018-5 (Version None)
Quarter: 2011Q4

REPORT INFORMATION
  Report Type: 
  Country: None (occurrence: None)
  Receive Date: 20111205
  Receipt Date: 20111130
  Transmission Date: 20120403
  Serious: No
  Sender: FDA-Public Use
  Company Number: US-PFIZER INC-2011292951

PATIENT
  Sex: Female
  Weight: 65.76 kg

DRUGS (5)
  1. PREMARIN [Concomitant]
     Indication: MENOPAUSE
     Dosage: UNK
  2. CALCIUM [Concomitant]
     Dosage: UNK
  3. PRISTIQ [Suspect]
     Indication: DEPRESSION
     Dosage: 50 MG, 1X/DAY
     Route: 048
     Dates: start: 20111129
  4. CELEBREX [Concomitant]
     Indication: ARTHRALGIA
     Dosage: UNK
  5. LOVAZA [Concomitant]
     Dosage: UNK

REACTIONS (4)
  - TINNITUS [None]
  - PAIN [None]
  - ABDOMINAL DISCOMFORT [None]
  - NAUSEA [None]
